FAERS Safety Report 24770639 (Version 1)
Quarter: 2024Q4

REPORT INFORMATION
  Report Type: Spontaneous
  Country: US (occurrence: None)
  Receive Date: 20241224
  Receipt Date: 20241224
  Transmission Date: 20250114
  Serious: No
  Sender: USAntibiotics
  Company Number: US-USAntibiotics-000370

PATIENT
  Age: 45 Year
  Sex: Female

DRUGS (2)
  1. AUGMENTIN [Suspect]
     Active Substance: AMOXICILLIN\CLAVULANATE POTASSIUM
     Indication: Product used for unknown indication
  2. DUPIXENT [Suspect]
     Active Substance: DUPILUMAB
     Indication: Nasal polyps
     Dosage: 300 MG/2ML ONCE A WEEK (QOW)
     Route: 058
     Dates: start: 202303

REACTIONS (5)
  - Drug hypersensitivity [Unknown]
  - Dyspnoea [Unknown]
  - Nasal polyps [Unknown]
  - Condition aggravated [Unknown]
  - Drug ineffective [Unknown]

NARRATIVE: CASE EVENT DATE: 20240101
